FAERS Safety Report 6315647-5 (Version None)
Quarter: 2009Q3

REPORT INFORMATION
  Report Type: 
  Country: None (occurrence: None)
  Receive Date: 20090818
  Receipt Date: 20090803
  Transmission Date: 20100115
  Serious: Yes (Hospitalization, Other)
  Sender: FDA-Public Use
  Company Number: 2008098959

PATIENT
  Sex: Female

DRUGS (5)
  1. FRAGMIN [Suspect]
     Dosage: SUBCUTANEOUS
     Route: 058
     Dates: start: 20080824, end: 20081118
  2. ESTROFEM (ESTRIOL,ESTRADIOL) [Concomitant]
  3. AGOLUTIN (PROGESTERONE) [Concomitant]
  4. FOLIC ACID [Concomitant]
  5. PREGNYL [Concomitant]

REACTIONS (6)
  - BLOOD FIBRINOGEN INCREASED [None]
  - FIBRIN D DIMER INCREASED [None]
  - GESTATIONAL DIABETES [None]
  - RHABDOMYOMA [None]
  - TUBEROUS SCLEROSIS [None]
  - UTERINE HAEMATOMA [None]
